FAERS Safety Report 8479740-3 (Version None)
Quarter: 2012Q2

REPORT INFORMATION
  Report Type: 
  Country: None (occurrence: None)
  Receive Date: 20120629
  Receipt Date: 20120619
  Transmission Date: 20120825
  Serious: Yes (Hospitalization)
  Sender: FDA-Public Use
  Company Number: FR-ROCHE-1014057

PATIENT
  Sex: Male
  Weight: 69 kg

DRUGS (12)
  1. LANSOPRAZOLE [Concomitant]
  2. LORAZEPAM [Concomitant]
     Indication: ANXIOLYTIC THERAPY
     Dosage: AS NEEDED
  3. GAVISCON (FRANCE) [Concomitant]
     Indication: GASTROOESOPHAGEAL REFLUX DISEASE
     Dosage: AS NEEDED
  4. PLAVIX [Concomitant]
     Indication: ANTIPLATELET THERAPY
     Dates: start: 20111109
  5. VISMODEGIB [Suspect]
     Indication: BASAL CELL CARCINOMA
     Dosage: FREQUENCY DAILY, TEMPORARILY INTERRUPTED, LAST DOSE PRIOR SAE 08 NOV 2011
     Route: 048
     Dates: start: 20110705, end: 20111109
  6. DOMPERIDONE [Concomitant]
     Indication: ANTIEMETIC SUPPORTIVE CARE
  7. ACETAMINOPHEN [Concomitant]
     Indication: MYALGIA
     Dates: start: 20110728
  8. FLECAINIDE ACETATE [Concomitant]
     Indication: ARRHYTHMIA
     Dates: start: 20111110, end: 20111110
  9. VISMODEGIB [Suspect]
     Dates: start: 20111111, end: 20111122
  10. ESCITALOPRAM [Concomitant]
     Indication: ANTIDEPRESSANT THERAPY
  11. PERMIXON [Concomitant]
     Indication: BENIGN PROSTATIC HYPERPLASIA
  12. IRBESARTAN [Concomitant]
     Indication: HYPERTENSION
     Dates: start: 20120424

REACTIONS (2)
  - MYOCARDIAL ISCHAEMIA [None]
  - ATRIAL FIBRILLATION [None]
